FAERS Safety Report 25525985 (Version 1)
Quarter: 2025Q3

REPORT INFORMATION
  Report Type: Other
  Country: EU (occurrence: EU)
  Receive Date: 20250707
  Receipt Date: 20250707
  Transmission Date: 20251020
  Serious: Yes (Hospitalization, Other)
  Sender: PRASCO
  Company Number: EU-Prasco Laboratories-PRAS20250275

PATIENT
  Age: 84 Year
  Sex: Male

DRUGS (1)
  1. MIRTAZAPINE [Suspect]
     Active Substance: MIRTAZAPINE
     Indication: Product used for unknown indication
     Dosage: LOW-DOSE - PRESCRIBED 7.5 MG AT NIGHT - STARTED THE DAY BEFORE HOSPITALIZATION AND MISTAKENLY TOOK I
     Route: 065

REACTIONS (5)
  - Coma [Recovered/Resolved]
  - Depressed level of consciousness [Recovered/Resolved]
  - Respiratory failure [Recovered/Resolved]
  - Hypercapnia [Recovered/Resolved]
  - Inappropriate schedule of product administration [Recovered/Resolved]
